FAERS Safety Report 13017844 (Version 2)
Quarter: 2017Q1

REPORT INFORMATION
  Report Type: Spontaneous
  Country: US (occurrence: US)
  Receive Date: 20161212
  Receipt Date: 20170123
  Transmission Date: 20170428
  Serious: No
  Sender: FDA-Public Use
  Company Number: US-GLAXOSMITHKLINE-US2016GSK182973

PATIENT
  Age: 76 Year
  Sex: Female

DRUGS (2)
  1. TANZEUM [Suspect]
     Active Substance: ALBIGLUTIDE
     Dosage: UNK
  2. TANZEUM [Suspect]
     Active Substance: ALBIGLUTIDE
     Indication: ACCIDENTAL EXPOSURE TO PRODUCT
     Dosage: UNK
     Dates: start: 201610

REACTIONS (2)
  - Accidental exposure to product [Unknown]
  - Occupational exposure to product [Unknown]

NARRATIVE: CASE EVENT DATE: 201610
